FAERS Safety Report 21551344 (Version 1)
Quarter: 2022Q4

REPORT INFORMATION
  Report Type: Report from Study
  Country: US (occurrence: US)
  Receive Date: 20221103
  Receipt Date: 20221103
  Transmission Date: 20230112
  Serious: Yes (Other)
  Sender: FDA-Public Use
  Company Number: US-SEATTLE GENETICS-2022SGN10185

PATIENT
  Sex: Female
  Weight: 69.2 kg

DRUGS (3)
  1. TUCATINIB [Suspect]
     Active Substance: TUCATINIB
     Indication: Invasive breast carcinoma
     Dosage: TOTAL DOSE ADMINISTERED THIS COURSE: 12,600 MG
     Route: 048
     Dates: start: 20220815
  2. TUCATINIB [Suspect]
     Active Substance: TUCATINIB
     Indication: Invasive breast carcinoma
     Dosage: TOTAL DOSE ADMINISTERED THIS COURSE: 12,600 MG
     Route: 048
     Dates: start: 20220815
  3. ADO-TRASTUZUMAB EMTANSINE [Suspect]
     Active Substance: ADO-TRASTUZUMAB EMTANSINE
     Indication: Invasive breast carcinoma
     Dosage: TOTAL DOSE ADMINISTERED THIS COURSE: 250 MG
     Route: 042
     Dates: start: 20220725

REACTIONS (1)
  - Lymphocyte count decreased [Recovering/Resolving]

NARRATIVE: CASE EVENT DATE: 20220827
